FAERS Safety Report 24776441 (Version 2)
Quarter: 2024Q4

REPORT INFORMATION
  Report Type: Spontaneous
  Country: GR (occurrence: GR)
  Receive Date: 20241226
  Receipt Date: 20241230
  Transmission Date: 20250115
  Serious: Yes (Other)
  Sender: CELLTRION
  Company Number: GR-PFIZER INC-PV202400165007

PATIENT

DRUGS (1)
  1. INFLIXIMAB [Suspect]
     Active Substance: INFLIXIMAB
     Indication: Crohn^s disease
     Dosage: UNK

REACTIONS (4)
  - Hypertrophic cardiomyopathy [Recovering/Resolving]
  - Angina pectoris [Recovering/Resolving]
  - Atrial fibrillation [Recovering/Resolving]
  - Mitral valve disease [Recovering/Resolving]
